FAERS Safety Report 8118294-8 (Version None)
Quarter: 2012Q1

REPORT INFORMATION
  Report Type: 
  Country: None (occurrence: None)
  Receive Date: 20120201
  Receipt Date: 20111124
  Transmission Date: 20120608
  Serious: Yes (Life-Threatening, Hospitalization, Other)
  Sender: FDA-Public Use
  Company Number: 2011IN000314

PATIENT
  Age: 62 Year
  Sex: Female
  Weight: 63 kg

DRUGS (1)
  1. INC424 (INC424) TABLET (RUXOLINITIB) [Suspect]
     Indication: MYELOFIBROSIS
     Dosage: 20 MG, BID, ORAL
     Route: 048
     Dates: start: 20111109, end: 20111124

REACTIONS (7)
  - LEUKOCYTOSIS [None]
  - THROMBOCYTOSIS [None]
  - COAGULOPATHY [None]
  - INTRA-ABDOMINAL HAEMORRHAGE [None]
  - CONFUSIONAL STATE [None]
  - ANAEMIA [None]
  - RENAL FAILURE [None]
